FAERS Safety Report 5937765-3 (Version None)
Quarter: 2008Q4

REPORT INFORMATION
  Report Type: 
  Country: None (occurrence: None)
  Receive Date: 20081031
  Receipt Date: 20081024
  Transmission Date: 20090506
  Serious: Yes (Hospitalization, Other)
  Sender: FDA-Public Use
  Company Number: PHHO2008US10978

PATIENT
  Sex: Male
  Weight: 98.5 kg

DRUGS (10)
  1. ZOLEDRONATE T29581+SOLINF [Suspect]
     Indication: METASTASES TO BONE
     Dosage: 4MG EVERY 4 WEEKS
     Route: 042
     Dates: start: 20080207, end: 20080814
  2. MITOXANTRONE [Suspect]
     Dosage: UNK
     Dates: start: 20080604
  3. PREDNISONE [Suspect]
     Dosage: UNK
     Dates: start: 20080604
  4. SAMARIUM [153 SM] LEXIDRONAM PENTASODIUM [Concomitant]
  5. VITAMIN D [Concomitant]
  6. CALCIUM [Concomitant]
  7. CASODEX [Concomitant]
  8. LUPRON [Concomitant]
  9. TAXOTERE [Concomitant]
     Dosage: UNK
  10. DIOVAN [Concomitant]
     Dosage: UNK

REACTIONS (15)
  - BLOOD CREATININE INCREASED [None]
  - BLOODY DISCHARGE [None]
  - BODY TEMPERATURE INCREASED [None]
  - DEHYDRATION [None]
  - FEBRILE NEUTROPENIA [None]
  - HYDRONEPHROSIS [None]
  - HYPERKALAEMIA [None]
  - HYPOTENSION [None]
  - MALIGNANT NEOPLASM PROGRESSION [None]
  - MEDICAL DEVICE COMPLICATION [None]
  - NEPHROSTOMY TUBE PLACEMENT [None]
  - RENAL FAILURE ACUTE [None]
  - RETROPERITONEAL LYMPHADENOPATHY [None]
  - URETERIC OBSTRUCTION [None]
  - VOMITING [None]
